FAERS Safety Report 6773058-2 (Version None)
Quarter: 2010Q2

REPORT INFORMATION
  Report Type: 
  Country: None (occurrence: None)
  Receive Date: 20100616
  Receipt Date: 20100607
  Transmission Date: 20101027
  Serious: Yes (Other)
  Sender: FDA-Public Use
  Company Number: US-PFIZER INC-2010051256

PATIENT
  Sex: Female

DRUGS (1)
  1. CYTOTEC [Suspect]
     Indication: ABORTION

REACTIONS (2)
  - ABORTION INDUCED [None]
  - OFF LABEL USE [None]
